FAERS Safety Report 4796266-9 (Version None)
Quarter: 2005Q4

REPORT INFORMATION
  Report Type: 
  Country: None (occurrence: None)
  Receive Date: 20051007
  Receipt Date: 20050927
  Transmission Date: 20060501
  Serious: Yes (Disabling, Other)
  Sender: FDA-Public Use
  Company Number: 2005135488

PATIENT
  Age: 36 Year
  Sex: Male
  Weight: 117.9352 kg

DRUGS (3)
  1. VISTARIL CAP [Suspect]
     Indication: ILL-DEFINED DISORDER
     Dosage: 50 MG (50 MG, 1 IN 1 D)
  2. MINOXIDIL [Concomitant]
  3. ATENOLOL [Concomitant]

REACTIONS (6)
  - GASTROINTESTINAL OEDEMA [None]
  - HAEMODIALYSIS [None]
  - MEMORY IMPAIRMENT [None]
  - POOR VENOUS ACCESS [None]
  - RENAL FAILURE CHRONIC [None]
  - VENOUS OCCLUSION [None]
